FAERS Safety Report 16996432 (Version 1)
Quarter: 2019Q4

REPORT INFORMATION
  Report Type: Spontaneous
  Country: US (occurrence: US)
  Receive Date: 20191105
  Receipt Date: 20191105
  Transmission Date: 20200122
  Serious: No
  Sender: FDA-Public Use
  Company Number: US-SA-2019SA298088

PATIENT
  Sex: Female

DRUGS (9)
  1. KETOCONAZOLE. [Concomitant]
     Active Substance: KETOCONAZOLE
  2. CLOBETASOL PROPIONATE. [Concomitant]
     Active Substance: CLOBETASOL PROPIONATE
  3. VENLAFAXINE HCL [Concomitant]
     Active Substance: VENLAFAXINE HYDROCHLORIDE
  4. DUPIXENT [Suspect]
     Active Substance: DUPILUMAB
     Dosage: 300 MG, QOW
     Route: 058
  5. LOSARTAN POTASSIUM. [Concomitant]
     Active Substance: LOSARTAN POTASSIUM
  6. CEPHALEXIN [CEFALEXIN] [Concomitant]
     Active Substance: CEPHALEXIN
  7. RESTASIS [Concomitant]
     Active Substance: CYCLOSPORINE
  8. ROSUVASTATIN CALCIUM. [Concomitant]
     Active Substance: ROSUVASTATIN CALCIUM
  9. CARTIA XT [Concomitant]
     Active Substance: DILTIAZEM HYDROCHLORIDE

REACTIONS (4)
  - Pruritus [Unknown]
  - Rash [Unknown]
  - Condition aggravated [Unknown]
  - Condition aggravated [Unknown]

NARRATIVE: CASE EVENT DATE: 201910
